FAERS Safety Report 4366709-3 (Version None)
Quarter: 2004Q2

REPORT INFORMATION
  Report Type: 
  Country: None (occurrence: None)
  Receive Date: 20040527
  Receipt Date: 20040217
  Transmission Date: 20050107
  Serious: Yes (Hospitalization)
  Sender: FDA-Public Use
  Company Number: DE-MERCK-0402DEU00116

PATIENT
  Age: 10 Year
  Sex: Female

DRUGS (1)
  1. SINGULAIR [Suspect]
     Indication: ASTHMA
     Route: 048
     Dates: start: 19990927

REACTIONS (2)
  - FALL [None]
  - X-RAY LIMB ABNORMAL [None]
